FAERS Safety Report 5964892-7 (Version None)
Quarter: 2008Q4

REPORT INFORMATION
  Report Type: 
  Country: None (occurrence: None)
  Receive Date: 20081121
  Receipt Date: 20081107
  Transmission Date: 20090506
  Serious: Yes (Hospitalization)
  Sender: FDA-Public Use
  Company Number: 8039553

PATIENT

DRUGS (1)
  1. KEPPRA [Suspect]

REACTIONS (1)
  - DRUG ADMINISTRATION ERROR [None]
